FAERS Safety Report 7575198-7 (Version None)
Quarter: 2011Q2

REPORT INFORMATION
  Report Type: 
  Country: None (occurrence: None)
  Receive Date: 20110627
  Receipt Date: 20110615
  Transmission Date: 20111010
  Serious: Yes (Hospitalization)
  Sender: FDA-Public Use
  Company Number: SE-UCBSA-035415

PATIENT
  Sex: Female

DRUGS (2)
  1. KEPPRA [Suspect]
     Indication: EPILEPSY
     Dates: start: 20110318, end: 20110325
  2. TEGRETOL [Suspect]
     Indication: EPILEPSY
     Dates: start: 20110101, end: 20110318

REACTIONS (3)
  - MIGRAINE [None]
  - PALPITATIONS [None]
  - GENERALISED OEDEMA [None]
